FAERS Safety Report 11854165 (Version 1)
Quarter: 2015Q4

REPORT INFORMATION
  Report Type: Spontaneous
  Country: US (occurrence: US)
  Receive Date: 20151220
  Receipt Date: 20151220
  Transmission Date: 20160305
  Serious: No
  Sender: FDA-Public Use
  Company Number: US-ELI_LILLY_AND_COMPANY-US201512004181

PATIENT
  Sex: Female

DRUGS (5)
  1. TRULICITY [Suspect]
     Active Substance: DULAGLUTIDE
     Indication: TYPE 2 DIABETES MELLITUS
     Dosage: 0.75 MG, WEEKLY (1/W)
     Route: 065
     Dates: start: 20151206
  2. CYMBALTA [Concomitant]
     Active Substance: DULOXETINE HYDROCHLORIDE
     Dosage: UNK, UNKNOWN
     Route: 065
  3. HUMALOG [Suspect]
     Active Substance: INSULIN LISPRO
     Dosage: 34-41 UNITS THREE TIMES A DAY
     Route: 065
  4. HUMALOG [Suspect]
     Active Substance: INSULIN LISPRO
     Indication: TYPE 2 DIABETES MELLITUS
     Dosage: 20 U, THEN HAD A SLIDING SCALE TO ADD UNITS TO IT
     Route: 065
     Dates: start: 2013
  5. LANTUS [Concomitant]
     Active Substance: INSULIN GLARGINE
     Dosage: UNK, EACH EVENING
     Route: 065

REACTIONS (8)
  - Dental caries [Unknown]
  - Hypertension [Unknown]
  - Diabetic neuropathy [Unknown]
  - Gingivitis [Unknown]
  - Diabetes mellitus inadequate control [Unknown]
  - Urine output decreased [Unknown]
  - Diabetes mellitus inadequate control [Unknown]
  - Toothache [Unknown]

NARRATIVE: CASE EVENT DATE: 2014
